FAERS Safety Report 6295720-0 (Version None)
Quarter: 2009Q3

REPORT INFORMATION
  Report Type: 
  Country: None (occurrence: None)
  Receive Date: 20090731
  Receipt Date: 20090720
  Transmission Date: 20100115
  Serious: Yes (Other)
  Sender: FDA-Public Use
  Company Number: ADE# 09-361DPR

PATIENT
  Age: 55 Year
  Sex: Male

DRUGS (5)
  1. DIGOXIN [Suspect]
     Indication: TACHYCARDIA
     Dosage: ONE TABLET DAILY
     Dates: start: 20090401, end: 20090601
  2. DOXAZOSIN MESYLATE [Concomitant]
  3. BLOOD PRESSURE PILL [Concomitant]
  4. NASAL MEDICATION FOR SINUSES (FLUTICASONE) [Concomitant]
  5. BLOOD SUGAR MEDICATION [Concomitant]

REACTIONS (8)
  - ASTHENIA [None]
  - BLOOD TESTOSTERONE DECREASED [None]
  - DIZZINESS [None]
  - HEART RATE DECREASED [None]
  - HEART RATE INCREASED [None]
  - HEART RATE IRREGULAR [None]
  - HYPOTHYROIDISM [None]
  - LOSS OF CONSCIOUSNESS [None]
